FAERS Safety Report 19032672 (Version 1)
Quarter: 2021Q1

REPORT INFORMATION
  Report Type: Spontaneous
  Country: US (occurrence: US)
  Receive Date: 20210319
  Receipt Date: 20210319
  Transmission Date: 20210420
  Serious: Yes (Other)
  Sender: FDA-Public Use
  Company Number: US-IPSEN BIOPHARMACEUTICALS, INC.-2021-07115

PATIENT
  Sex: Male

DRUGS (2)
  1. SOMATULINE DEPOT [Suspect]
     Active Substance: LANREOTIDE ACETATE
     Indication: OFF LABEL USE
  2. SOMATULINE DEPOT [Suspect]
     Active Substance: LANREOTIDE ACETATE
     Indication: POLYCYSTIC LIVER DISEASE
     Route: 065
     Dates: start: 2020

REACTIONS (4)
  - Blood pressure increased [Unknown]
  - Erectile dysfunction [Unknown]
  - Congenital cystic kidney disease [Unknown]
  - Off label use [Unknown]
